FAERS Safety Report 13467610 (Version 2)
Quarter: 2017Q2

REPORT INFORMATION
  Report Type: Report from Study
  Country: None (occurrence: BR)
  Receive Date: 20170421
  Receipt Date: 20170428
  Transmission Date: 20170830
  Serious: Yes (Other)
  Sender: FDA-Public Use
  Company Number: BR-ABBVIE-17K-020-1947082-00

PATIENT
  Age: 36 Year
  Sex: Female
  Weight: 74 kg

DRUGS (1)
  1. HUMIRA [Suspect]
     Active Substance: ADALIMUMAB
     Indication: RHEUMATOID ARTHRITIS
     Route: 058

REACTIONS (10)
  - Abdominal pain upper [Unknown]
  - Abdominal distension [Unknown]
  - Gastrointestinal ulcer [Not Recovered/Not Resolved]
  - Amnesia [Not Recovered/Not Resolved]
  - Emotional distress [Unknown]
  - Blindness unilateral [Not Recovered/Not Resolved]
  - Dyspepsia [Unknown]
  - Arthritis [Unknown]
  - Eructation [Unknown]
  - Pain [Unknown]

NARRATIVE: CASE EVENT DATE: 201510
